FAERS Safety Report 7515825-3 (Version None)
Quarter: 2011Q2

REPORT INFORMATION
  Report Type: 
  Country: None (occurrence: None)
  Receive Date: 20110601
  Receipt Date: 20110523
  Transmission Date: 20111010
  Serious: Yes (Other)
  Sender: FDA-Public Use
  Company Number: US-ASTRAZENECA-2011SE19976

PATIENT
  Age: 42 Year
  Sex: Female
  Weight: 73 kg

DRUGS (2)
  1. VIMOVO [Suspect]
     Dosage: 500MG/20 MG  TWICE DAILY
     Route: 048
     Dates: start: 20110329, end: 20110402
  2. VIMOVO [Suspect]
     Dosage: 500MG/20 MG , DAILY
     Route: 048
     Dates: start: 20110403, end: 20110406

REACTIONS (5)
  - RASH PRURITIC [None]
  - RASH GENERALISED [None]
  - PYREXIA [None]
  - URTICARIA [None]
  - THROAT TIGHTNESS [None]
